FAERS Safety Report 4732080-8 (Version None)
Quarter: 2005Q3

REPORT INFORMATION
  Report Type: 
  Country: None (occurrence: None)
  Receive Date: 20050722
  Receipt Date: 20050622
  Transmission Date: 20060218
  Serious: Yes (Hospitalization)
  Sender: FDA-Public Use
  Company Number: 05P-163-0288520-00

PATIENT
  Age: 45 Year
  Sex: Male

DRUGS (7)
  1. NORVIR [Suspect]
     Indication: HIV INFECTION
     Dosage: 100 MG, 2 IN 1 D, PER ORAL
     Route: 048
     Dates: start: 20030424, end: 20040621
  2. NORVIR [Suspect]
     Indication: HIV INFECTION
     Dosage: 100 MG, 2 IN 1 D, PER ORAL
     Route: 048
     Dates: start: 20040622
  3. TIPRANAVIR [Suspect]
     Indication: HIV INFECTION
     Dosage: 250 MG, 4 IN 1 D, PER ORAL
     Route: 048
     Dates: start: 20030424, end: 20040621
  4. TIPRANAVIR [Suspect]
     Indication: HIV INFECTION
     Dosage: 250 MG, 4 IN 1 D, PER ORAL
     Route: 048
     Dates: start: 20040622
  5. NEVIRAPINE [Concomitant]
  6. DIDANOSINE [Concomitant]
  7. KALETRA [Concomitant]

REACTIONS (1)
  - CHEST PAIN [None]
